FAERS Safety Report 22650324 (Version 11)
Quarter: 2025Q1

REPORT INFORMATION
  Report Type: Report from Study
  Country: DE (occurrence: DE)
  Receive Date: 20230628
  Receipt Date: 20250128
  Transmission Date: 20250409
  Serious: Yes (Other)
  Sender: TAKEDA
  Company Number: DE-TAKEDA-2023TUS062966

PATIENT
  Age: 55 Year
  Sex: Male

DRUGS (32)
  1. TEDUGLUTIDE [Suspect]
     Active Substance: TEDUGLUTIDE
     Indication: Short-bowel syndrome
     Dosage: 2.5 MILLIGRAM, QD
     Dates: start: 20211102, end: 20220927
  2. TEDUGLUTIDE [Suspect]
     Active Substance: TEDUGLUTIDE
     Dosage: 5 MILLIGRAM, QD
     Dates: start: 20220928, end: 20230818
  3. TEDUGLUTIDE [Suspect]
     Active Substance: TEDUGLUTIDE
     Dosage: 2.5 MILLIGRAM, QD
     Dates: start: 20231101
  4. TEDUGLUTIDE [Suspect]
     Active Substance: TEDUGLUTIDE
  5. VITAMIN B6 [Concomitant]
     Active Substance: PYRIDOXINE HYDROCHLORIDE
     Indication: Vitamin B6 deficiency
     Dosage: 40 MILLIGRAM, BID
     Dates: start: 20220713
  6. Kalinor-retard [Concomitant]
     Indication: Hypokalaemia
     Dosage: 600 MILLIGRAM, QID
     Dates: start: 202207
  7. VITAMIN B12 [Concomitant]
     Active Substance: CYANOCOBALAMIN
     Indication: Vitamin B12 deficiency
     Dosage: 1000 MICROGRAM, 1/WEEK
     Dates: start: 20220629, end: 202207
  8. VITAMIN B12 [Concomitant]
     Active Substance: CYANOCOBALAMIN
     Dosage: 1000 MICROGRAM, MONTHLY
     Dates: start: 202207
  9. AZATHIOPRINE [Concomitant]
     Active Substance: AZATHIOPRINE
     Indication: Crohn^s disease
     Dosage: 200 MILLIGRAM, BID
     Dates: end: 2020
  10. STELARA [Concomitant]
     Active Substance: USTEKINUMAB
     Indication: Crohn^s disease
  11. GABAPENTIN STADA [Concomitant]
     Indication: Restless legs syndrome
     Dosage: 900 MILLIGRAM, TID
  12. NEUPRO [Concomitant]
     Active Substance: ROTIGOTINE
     Indication: Restless legs syndrome
     Dosage: 8 MILLIGRAM, BID
  13. CHOLECALCIFEROL [Concomitant]
     Active Substance: CHOLECALCIFEROL
     Indication: Vitamin D deficiency
     Dosage: 0.5 MILLIGRAM, QD
  14. Selenase [Concomitant]
     Indication: Mineral supplementation
     Dosage: UNK UNK, QD
  15. FAMOTIDIN STADA [Concomitant]
     Indication: Gastric pH decreased
     Dosage: 80 MILLIGRAM, BID
  16. ACETAMINOPHEN [Concomitant]
     Active Substance: ACETAMINOPHEN
     Indication: Pain
  17. FRAGMIN [Concomitant]
     Active Substance: DALTEPARIN SODIUM
     Indication: Device occlusion
     Dosage: 2500 INTERNATIONAL UNIT, QD
  18. PANTOPRAZOLE [Concomitant]
     Active Substance: PANTOPRAZOLE
     Indication: Short-bowel syndrome
     Dosage: 40 MILLIGRAM, BID
     Dates: start: 2021
  19. POTASSIUM [Concomitant]
     Active Substance: POTASSIUM
     Indication: Mineral supplementation
     Dosage: 600 MILLIGRAM, BID
     Dates: start: 202202, end: 202207
  20. FOLIC ACID [Concomitant]
     Active Substance: FOLIC ACID
     Indication: Folate deficiency
     Dosage: 5 MILLIGRAM, QD
     Dates: start: 20220629
  21. ROTIGOTINE [Concomitant]
     Active Substance: ROTIGOTINE
     Indication: Restless legs syndrome
     Dosage: 9 MILLIGRAM, BID
     Route: 061
  22. CHOLECALCIFEROL [Concomitant]
     Active Substance: CHOLECALCIFEROL
     Indication: Vitamin D deficiency
     Dosage: 20000 INTERNATIONAL UNIT, 1/WEEK
     Dates: start: 20220629
  23. PIPERACILLIN SODIUM\TAZOBACTAM SODIUM [Concomitant]
     Active Substance: PIPERACILLIN SODIUM\TAZOBACTAM SODIUM
     Indication: Antibiotic therapy
     Dates: start: 20240826, end: 20240905
  24. CALCIUMCARBONAT [Concomitant]
     Indication: Mineral supplementation
     Dosage: 1250 MILLIGRAM, QD
     Dates: start: 202408
  25. CEFUROXIME [Concomitant]
     Active Substance: CEFUROXIME
  26. PREDNISOLONE [Concomitant]
     Active Substance: PREDNISOLONE
     Dosage: 50 MILLIGRAM, QD
     Dates: start: 20240826, end: 20240910
  27. PREDNISOLONE [Concomitant]
     Active Substance: PREDNISOLONE
     Dosage: 20 MILLIGRAM, BID
     Dates: start: 20240911, end: 20240917
  28. PREDNISOLONE [Concomitant]
     Active Substance: PREDNISOLONE
     Dosage: 15 MILLIGRAM, QD
     Dates: start: 20240918, end: 20240925
  29. PREDNISOLONE [Concomitant]
     Active Substance: PREDNISOLONE
     Dosage: 20 MILLIGRAM, QD
     Dates: start: 20240926, end: 20240930
  30. PREDNISOLONE [Concomitant]
     Active Substance: PREDNISOLONE
     Dosage: 10 MILLIGRAM, QD
     Dates: start: 20241001, end: 20241005
  31. PREDNISOLONE [Concomitant]
     Active Substance: PREDNISOLONE
     Dosage: 5 MILLIGRAM, QD
     Dates: start: 20241006, end: 20241010
  32. PREDNISOLONE [Concomitant]
     Active Substance: PREDNISOLONE
     Dosage: 2.5 MILLIGRAM, QD
     Dates: start: 20241011, end: 20241015

REACTIONS (7)
  - Erysipelas [Not Recovered/Not Resolved]
  - Intestinal mucosal hypertrophy [Not Recovered/Not Resolved]
  - Gastrooesophageal reflux disease [Not Recovered/Not Resolved]
  - Sleep apnoea syndrome [Recovered/Resolved]
  - Transaminases increased [Not Recovered/Not Resolved]
  - Limb discomfort [Not Recovered/Not Resolved]
  - Duodenal polyp [Recovered/Resolved]

NARRATIVE: CASE EVENT DATE: 20230101
